FAERS Safety Report 6553445-8 (Version None)
Quarter: 2010Q1

REPORT INFORMATION
  Report Type: 
  Country: None (occurrence: None)
  Receive Date: 20100122
  Receipt Date: 20100111
  Transmission Date: 20100710
  Serious: Yes (Other)
  Sender: FDA-Public Use
  Company Number: 230419J10USA

PATIENT
  Age: 6 Year
  Sex: Female

DRUGS (1)
  1. REBIF [Suspect]
     Indication: MULTIPLE SCLEROSIS
     Dosage: ORAL
     Route: 048
     Dates: start: 20100101, end: 20100101

REACTIONS (3)
  - ACCIDENTAL DRUG INTAKE BY CHILD [None]
  - NAUSEA [None]
  - VOMITING [None]
